FAERS Safety Report 24570948 (Version 2)
Quarter: 2025Q3

REPORT INFORMATION
  Report Type: Spontaneous
  Country: US (occurrence: US)
  Receive Date: 20241101
  Receipt Date: 20250729
  Transmission Date: 20251020
  Serious: No
  Sender: LUPIN
  Company Number: US-LUPIN PHARMACEUTICALS INC.-2024-10552

PATIENT
  Age: 26 Year
  Weight: 70.295 kg

DRUGS (3)
  1. ALBUTEROL SULFATE [Suspect]
     Active Substance: ALBUTEROL SULFATE
     Indication: Asthma
  2. ALBUTEROL SULFATE [Suspect]
     Active Substance: ALBUTEROL SULFATE
  3. FLOVENT HFA [Concomitant]
     Active Substance: FLUTICASONE PROPIONATE
     Indication: Product used for unknown indication
     Route: 065

REACTIONS (4)
  - Drug dose omission by device [Unknown]
  - Wrong technique in device usage process [Unknown]
  - Product preparation error [Unknown]
  - No adverse event [Unknown]
